FAERS Safety Report 20925974 (Version 1)
Quarter: 2022Q2

REPORT INFORMATION
  Report Type: Spontaneous
  Country: US (occurrence: None)
  Receive Date: 20220607
  Receipt Date: 20220607
  Transmission Date: 20220721
  Serious: Yes (Hospitalization)
  Sender: FDA-Public Use
  Company Number: None

PATIENT
  Sex: Male
  Weight: 73.2 kg

DRUGS (3)
  1. FLUOROURACIL [Suspect]
     Active Substance: FLUOROURACIL
     Dates: end: 20220509
  2. CAMPTOSAR [Suspect]
     Active Substance: IRINOTECAN HYDROCHLORIDE
     Dates: end: 20220509
  3. ELOXATIN [Suspect]
     Active Substance: OXALIPLATIN
     Dates: end: 20220509

REACTIONS (2)
  - Anastomotic ulcer haemorrhage [None]
  - Anaemia [None]

NARRATIVE: CASE EVENT DATE: 20220527
